FAERS Safety Report 8607362-X (Version None)
Quarter: 2012Q3

REPORT INFORMATION
  Report Type: 
  Country: None (occurrence: None)
  Receive Date: 20120821
  Receipt Date: 20120814
  Transmission Date: 20120928
  Serious: No
  Sender: FDA-Public Use
  Company Number: US-PFIZER INC-2012192659

PATIENT
  Age: 50 Year
  Sex: Female
  Weight: 178 kg

DRUGS (2)
  1. PREMPRO [Suspect]
     Indication: MENOPAUSAL SYMPTOMS
     Dosage: 0.625/2.5 MG, 1X/DAY
     Route: 048
     Dates: start: 20120301, end: 20120802
  2. PREMARIN [Suspect]
     Dosage: 1.25 MG, 1 TABLET, UNK
     Route: 048
     Dates: start: 20120807, end: 20120807

REACTIONS (3)
  - WRONG DRUG ADMINISTERED [None]
  - MENOPAUSE [None]
  - DRUG DISPENSING ERROR [None]
